FAERS Safety Report 14525285 (Version 1)
Quarter: 2018Q1

REPORT INFORMATION
  Report Type: Spontaneous
  Country: US (occurrence: US)
  Receive Date: 20180210
  Receipt Date: 20180210
  Transmission Date: 20180509
  Serious: Yes (Hospitalization, Disabling)
  Sender: FDA-Public Use
  Company Number: None

PATIENT
  Age: 41 Year
  Sex: Female
  Weight: 61.2 kg

DRUGS (1)
  1. OMNISCAN [Suspect]
     Active Substance: GADODIAMIDE
     Indication: NUCLEAR MAGNETIC RESONANCE IMAGING
     Route: 042
     Dates: start: 20180206

REACTIONS (5)
  - Loss of personal independence in daily activities [None]
  - Blood pressure decreased [None]
  - Lethargy [None]
  - Headache [None]
  - Depressed level of consciousness [None]

NARRATIVE: CASE EVENT DATE: 20180206
